FAERS Safety Report 6389504-2 (Version None)
Quarter: 2009Q4

REPORT INFORMATION
  Report Type: 
  Country: None (occurrence: None)
  Receive Date: 20091006
  Receipt Date: 20090928
  Transmission Date: 20100525
  Serious: Yes (Other)
  Sender: FDA-Public Use
  Company Number: ES-ROCHE-659906

PATIENT
  Age: 43 Year
  Sex: Female

DRUGS (10)
  1. SAQUINAVIR [Suspect]
     Route: 065
  2. LAMIVUDINE [Suspect]
     Route: 065
  3. DIDANOSINE [Suspect]
     Route: 065
  4. STAVUDINE [Suspect]
     Route: 065
  5. TENOFOVIR [Suspect]
     Dosage: DRUG NAME REPORTED AS TENOVOFIR
     Route: 065
  6. NEVIRAPINE [Suspect]
     Route: 065
  7. ZIDOVUDINE [Suspect]
     Route: 065
  8. LOPINAVIR [Suspect]
     Route: 065
  9. RITONAVIR [Suspect]
     Route: 065
  10. INDINAVIR [Suspect]
     Route: 065

REACTIONS (1)
  - PORTAL HYPERTENSION [None]
